FAERS Safety Report 5714437-1 (Version None)
Quarter: 2008Q2

REPORT INFORMATION
  Report Type: 
  Country: None (occurrence: None)
  Receive Date: 20080423
  Receipt Date: 20070306
  Transmission Date: 20081010
  Serious: No
  Sender: FDA-Public Use
  Company Number: A0642078A

PATIENT
  Age: 89 Year
  Sex: Female

DRUGS (5)
  1. LEUKERAN [Suspect]
     Indication: HODGKIN'S DISEASE
     Dosage: 6MG PER DAY
     Route: 048
     Dates: start: 20070305
  2. PREDNISONE [Concomitant]
  3. VELBAN [Concomitant]
  4. CHEMOTHERAPY [Concomitant]
  5. COREG [Concomitant]

REACTIONS (1)
  - MEDICATION ERROR [None]
